FAERS Safety Report 11092224 (Version 1)
Quarter: 2015Q2

REPORT INFORMATION
  Report Type: Spontaneous
  Country: US (occurrence: US)
  Receive Date: 20150506
  Receipt Date: 20150506
  Transmission Date: 20150821
  Serious: Yes (Hospitalization)
  Sender: FDA-Public Use
  Company Number: US-BAYER-2015-179105

PATIENT
  Sex: Female

DRUGS (1)
  1. YAZ [Suspect]
     Active Substance: DROSPIRENONE\ETHINYL ESTRADIOL

REACTIONS (6)
  - Injury [None]
  - Chest pain [None]
  - Myocarditis infectious [None]
  - Pulmonary embolism [None]
  - Myocardial infarction [None]
  - Heart injury [None]

NARRATIVE: CASE EVENT DATE: 20130309
